FAERS Safety Report 5971472-6 (Version None)
Quarter: 2008Q4

REPORT INFORMATION
  Report Type: 
  Country: None (occurrence: None)
  Receive Date: 20081201
  Receipt Date: 20081125
  Transmission Date: 20090506
  Serious: Yes (Death, Other)
  Sender: FDA-Public Use
  Company Number: FR-BRISTOL-MYERS SQUIBB COMPANY-14407084

PATIENT
  Age: 47 Year
  Sex: Male

DRUGS (6)
  1. SUSTIVA [Suspect]
     Dosage: 3 DOSAGE FORM = 3 CAPSULES.
     Dates: end: 20040101
  2. ZERIT [Suspect]
  3. EPIVIR [Suspect]
  4. BACTRIM [Suspect]
  5. SOLIAN [Suspect]
     Dosage: 1 DOSAGE FORM = 200 (UNIT NOT SPECIFIED)
  6. IMODIUM [Suspect]

REACTIONS (2)
  - HIV INFECTION [None]
  - SCHIZOPHRENIA [None]
